FAERS Safety Report 6965160-7 (Version None)
Quarter: 2010Q3

REPORT INFORMATION
  Report Type: 
  Country: None (occurrence: None)
  Receive Date: 20100903
  Receipt Date: 20100824
  Transmission Date: 20110219
  Serious: Yes (Other)
  Sender: FDA-Public Use
  Company Number: US-PFIZER INC-2010107168

PATIENT
  Sex: Female

DRUGS (2)
  1. LYRICA [Suspect]
     Indication: HERPES ZOSTER
     Dosage: 100 MG, 3X/DAY
     Dates: start: 20060101
  2. LYRICA [Suspect]
     Dosage: 100 MG, 2X/DAY

REACTIONS (2)
  - NEUROPATHY PERIPHERAL [None]
  - WITHDRAWAL SYNDROME [None]
